FAERS Safety Report 6905541-0 (Version None)
Quarter: 2010Q3

REPORT INFORMATION
  Report Type: 
  Country: None (occurrence: None)
  Receive Date: 20100804
  Receipt Date: 20100723
  Transmission Date: 20110219
  Serious: Yes (Other)
  Sender: FDA-Public Use
  Company Number: US-PFIZER INC-2010093387

PATIENT
  Age: 82 Year
  Sex: Female

DRUGS (1)
  1. DETROL LA [Suspect]
     Dosage: 8 MG DAILY

REACTIONS (4)
  - ANAEMIA [None]
  - INCORRECT DOSE ADMINISTERED [None]
  - NEOPLASM RECURRENCE [None]
  - SARCOMA UTERUS [None]
